FAERS Safety Report 5164790-5 (Version None)
Quarter: 2006Q4

REPORT INFORMATION
  Report Type: 
  Country: None (occurrence: None)
  Receive Date: 20061205
  Receipt Date: 20061129
  Transmission Date: 20070319
  Serious: Yes (Other)
  Sender: FDA-Public Use
  Company Number: US-AVENTIS-200619692US

PATIENT
  Sex: Female
  Weight: 100.9 kg

DRUGS (11)
  1. LANTUS [Suspect]
     Indication: DIABETES MELLITUS NON-INSULIN-DEPENDENT
     Route: 058
     Dates: start: 20060301
  2. PRAVACHOL [Concomitant]
     Dosage: DOSE: UNKNOWN
  3. QUINAPRIL [Concomitant]
     Dosage: DOSE: UNKNOWN
  4. ZYRTEC [Concomitant]
     Dosage: DOSE: UNKNOWN
  5. FUROSEMIDE [Concomitant]
     Dosage: DOSE: UNKNOWN
  6. ATENOLOL [Concomitant]
     Dosage: DOSE: UNKNOWN
  7. CELEBREX [Concomitant]
     Dosage: DOSE: UNKNOWN
  8. ACTOS [Concomitant]
     Dosage: DOSE: UNKNOWN
  9. POTASSIUM CHLORIDE [Concomitant]
     Dosage: DOSE: UNKNOWN
  10. DITROPAN XL [Concomitant]
     Dosage: DOSE: UNKNOWN
  11. HYDROCHLOROTHIAZIDE [Concomitant]
     Dosage: DOSE: UNKNOWN

REACTIONS (2)
  - DISCOMFORT [None]
  - LIPOMA [None]
